FAERS Safety Report 9161676 (Version 1)
Quarter: 2013Q1

REPORT INFORMATION
  Report Type: Spontaneous
  Country: US (occurrence: US)
  Receive Date: 20130314
  Receipt Date: 20130314
  Transmission Date: 20140127
  Serious: Yes (Other)
  Sender: FDA-Public Use
  Company Number: US-RANBAXY-2010US-41898

PATIENT
  Age: 38 Year
  Sex: Male

DRUGS (3)
  1. LAMOTRIGINE [Suspect]
     Indication: GRAND MAL CONVULSION
     Dosage: 100 MG, BID
     Route: 065
  2. TOPIRAMATE [Suspect]
     Indication: GRAND MAL CONVULSION
     Dosage: UNK
     Route: 065
  3. FEXOFENADINE/PSEUDOEPHEDRINE [Concomitant]
     Indication: SEASONAL ALLERGY
     Dosage: UNK
     Route: 065

REACTIONS (2)
  - Tic [Recovering/Resolving]
  - Sedation [Unknown]
